FAERS Safety Report 24443603 (Version 2)
Quarter: 2024Q4

REPORT INFORMATION
  Report Type: Report from Study
  Country: US (occurrence: US)
  Receive Date: 20241016
  Receipt Date: 20241017
  Transmission Date: 20250115
  Serious: No
  Sender: ROCHE
  Company Number: US-ROCHE-2009687

PATIENT
  Age: 55 Year
  Sex: Male

DRUGS (4)
  1. RITUXAN [Suspect]
     Active Substance: RITUXIMAB
     Indication: Multiple sclerosis
     Dosage: ON DAY 1 AND DAY 15
     Route: 041
  2. RITUXAN [Suspect]
     Active Substance: RITUXIMAB
     Route: 041
     Dates: start: 20170418
  3. RITUXAN [Suspect]
     Active Substance: RITUXIMAB
     Dosage: DATE OF TREATMENT: 08/MAY/2018, 31/OCT/2018,
     Route: 041
     Dates: start: 20170502
  4. RITUXAN [Suspect]
     Active Substance: RITUXIMAB
     Dosage: EVERY 24 WEEK
     Route: 041

REACTIONS (2)
  - Off label use [Unknown]
  - No adverse event [Unknown]
